FAERS Safety Report 9022572 (Version 1)
Quarter: 2013Q1

REPORT INFORMATION
  Report Type: Spontaneous
  Country: US (occurrence: US)
  Receive Date: 20130118
  Receipt Date: 20130118
  Transmission Date: 20140127
  Serious: No
  Sender: FDA-Public Use
  Company Number: US-GLAXOSMITHKLINE-A0983033A

PATIENT
  Age: 54 Year
  Sex: Female

DRUGS (5)
  1. PROMACTA [Suspect]
     Indication: IDIOPATHIC THROMBOCYTOPENIC PURPURA
     Dosage: 25MG PER DAY
     Route: 048
     Dates: start: 201109, end: 20120628
  2. NIACIN [Concomitant]
  3. VITAMIN B12 [Concomitant]
  4. PRILOSEC [Concomitant]
  5. ATIVAN [Concomitant]

REACTIONS (3)
  - Paraesthesia [Unknown]
  - Pain in extremity [Unknown]
  - Middle insomnia [Unknown]
